FAERS Safety Report 25798959 (Version 3)
Quarter: 2025Q4

REPORT INFORMATION
  Report Type: Spontaneous
  Country: US (occurrence: US)
  Receive Date: 20250913
  Receipt Date: 20251127
  Transmission Date: 20260118
  Serious: Yes (Hospitalization, Other)
  Sender: LUPIN
  Company Number: US-LUPIN PHARMACEUTICALS INC.-2025-08079

PATIENT
  Age: 45 Year

DRUGS (4)
  1. TOLVAPTAN [Suspect]
     Active Substance: TOLVAPTAN
     Indication: Congenital cystic kidney disease
     Dosage: UNK, QD
     Route: 065
  2. TOLVAPTAN [Suspect]
     Active Substance: TOLVAPTAN
     Dosage: UNK
     Route: 065
  3. TOLVAPTAN [Suspect]
     Active Substance: TOLVAPTAN
     Indication: Congenital cystic kidney disease
     Dosage: UNK, QD
     Route: 065
  4. TOLVAPTAN [Suspect]
     Active Substance: TOLVAPTAN
     Dosage: UNK
     Route: 065

REACTIONS (3)
  - Fistula [Recovered/Resolved]
  - Kidney infection [Not Recovered/Not Resolved]
  - Suspected COVID-19 [Not Recovered/Not Resolved]
